FAERS Safety Report 4603624-1 (Version None)
Quarter: 2005Q1

REPORT INFORMATION
  Report Type: 
  Country: None (occurrence: None)
  Receive Date: 20050308
  Receipt Date: 20050222
  Transmission Date: 20050727
  Serious: Yes (Hospitalization)
  Sender: FDA-Public Use
  Company Number: 212625

PATIENT
  Age: 42 Year
  Sex: Female

DRUGS (7)
  1. RITUXAN [Suspect]
     Indication: NON-HODGKIN'S LYMPHOMA
     Dosage: 500 MG, INTRAVENOUS
     Route: 042
     Dates: start: 20030218, end: 20040116
  2. VINCRISTINE [Concomitant]
  3. PREDNISONE [Concomitant]
  4. RANIMUSTINE (RANIMUSTINE) [Concomitant]
  5. CARBOPLATIN [Concomitant]
  6. ETOPOSIDE [Concomitant]
  7. CYCLOPHOSPHAMIDE [Concomitant]

REACTIONS (4)
  - GLOMERULONEPHRITIS RAPIDLY PROGRESSIVE [None]
  - RENAL DISORDER [None]
  - RENAL FAILURE [None]
  - STEM CELL TRANSPLANT [None]
